FAERS Safety Report 4283837-1 (Version None)
Quarter: 2004Q1

REPORT INFORMATION
  Report Type: 
  Country: None (occurrence: None)
  Receive Date: 20040130
  Receipt Date: 20040119
  Transmission Date: 20041129
  Serious: Yes (Death, Hospitalization)
  Sender: FDA-Public Use
  Company Number: HQWYE871805AUG03

PATIENT
  Age: 72 Year
  Sex: Male

DRUGS (14)
  1. CORDARONE [Suspect]
     Indication: SUPRAVENTRICULAR TACHYCARDIA
     Dosage: 200 MG 3X PER 1 DAY; ORAL (SEE IMAGE)
     Route: 048
     Dates: start: 20030401, end: 20030101
  2. CORDARONE [Suspect]
     Indication: SUPRAVENTRICULAR TACHYCARDIA
     Dosage: 200 MG 3X PER 1 DAY; ORAL (SEE IMAGE)
     Route: 048
     Dates: start: 20030101, end: 20030709
  3. CORDARONE [Suspect]
     Indication: SUPRAVENTRICULAR TACHYCARDIA
     Dosage: 200 MG 3X PER 1 DAY; ORAL (SEE IMAGE)
     Route: 048
     Dates: start: 20030710, end: 20030714
  4. CORDARONE X ^SANOFI^ (AMIODARONE HYDROCHLORIDE, ) [Suspect]
     Indication: SUPRAVENTRICULAR TACHYCARDIA
     Dosage: UNSPECIFIED; INTRAVENOUS
     Route: 042
     Dates: start: 20030401, end: 20030401
  5. ZESTRIL [Concomitant]
  6. LANOXIN [Concomitant]
  7. SINTROM MITIS (ACENOCOUMAROL) [Concomitant]
  8. LASIX [Concomitant]
  9. DEPAKENE [Concomitant]
  10. NOVONORM (REPAGLINIDE) [Concomitant]
  11. MOLSIDOMINE [Concomitant]
  12. GLUCOPHAGE [Concomitant]
  13. ISOPTIN [Concomitant]
  14. ADENOCOR (ADENOSINE) [Concomitant]

REACTIONS (14)
  - DILATATION ATRIAL [None]
  - DILATATION VENTRICULAR [None]
  - DYSPNOEA [None]
  - EJECTION FRACTION DECREASED [None]
  - FIBRIN D DIMER INCREASED [None]
  - GLYCOSYLATED HAEMOGLOBIN INCREASED [None]
  - LUNG DISORDER [None]
  - OEDEMA [None]
  - OXYGEN SATURATION DECREASED [None]
  - PERIPHERAL EMBOLISM [None]
  - PNEUMONIA VIRAL [None]
  - PROCEDURAL COMPLICATION [None]
  - VENTRICULAR HYPOKINESIA [None]
  - WEIGHT DECREASED [None]
